FAERS Safety Report 5293277-4 (Version None)
Quarter: 2007Q2

REPORT INFORMATION
  Report Type: 
  Country: None (occurrence: None)
  Receive Date: 20070411
  Receipt Date: 20070330
  Transmission Date: 20071010
  Serious: No
  Sender: FDA-Public Use
  Company Number: 2006UW08459

PATIENT
  Age: 497 Month
  Sex: Female
  Weight: 65.9 kg

DRUGS (3)
  1. SEROQUEL [Suspect]
     Indication: BIPOLAR DISORDER
     Route: 048
     Dates: start: 20030901
  2. SEROQUEL [Suspect]
     Indication: DEPRESSION
     Route: 048
     Dates: start: 20030901
  3. RISPERDAL [Concomitant]
     Dates: start: 20030901

REACTIONS (1)
  - DIABETES MELLITUS [None]
